FAERS Safety Report 5452345-4 (Version None)
Quarter: 2007Q3

REPORT INFORMATION
  Report Type: 
  Country: None (occurrence: None)
  Receive Date: 20070912
  Receipt Date: 20070912
  Transmission Date: 20080115
  Serious: Yes (Life-Threatening, Hospitalization, Disabling, Other)
  Sender: FDA-Public Use
  Company Number: None

PATIENT
  Age: 46 Year
  Sex: Male
  Weight: 68.0396 kg

DRUGS (1)
  1. ASACOL [Suspect]
     Indication: COLITIS ULCERATIVE
     Dosage: 4 TABLETS BY MOUTH 2X DAILY PO
     Route: 048

REACTIONS (3)
  - BIOPSY KIDNEY ABNORMAL [None]
  - KIDNEY FIBROSIS [None]
  - RENAL IMPAIRMENT [None]
